FAERS Safety Report 8847476 (Version 2)
Quarter: 2012Q4

REPORT INFORMATION
  Report Type: 
  Country: US (occurrence: US)
  Receive Date: 20121018
  Receipt Date: 20121030
  Transmission Date: 20130627
  Serious: Yes (Hospitalization)
  Sender: FDA-Public Use
  Company Number: US-UCBSA-068623

PATIENT
  Age: 40 Year
  Sex: Female

DRUGS (8)
  1. KEPPRA XR [Suspect]
     Indication: CONVULSION
     Dosage: STRENGTH: 750 MG
     Dates: start: 20120609
  2. COUMADIN [Concomitant]
     Dosage: VARIES WEEKLY, CURRENTLY 10 MG 4 DAYS A WEEK AND 12.5 MG 3 DAYS A WEEK
  3. METFORMIN [Concomitant]
     Indication: DIABETES MELLITUS
  4. LISINOPRIL [Concomitant]
     Indication: HYPERTENSION
     Dosage: DAILY DOSE : 20 MG
  5. SIMVASTATIN [Concomitant]
     Indication: BLOOD CHOLESTEROL
     Dosage: DAILY DOSE: 20 MG
  6. TRILEPTAL [Concomitant]
     Indication: BIPOLAR DISORDER
  7. XANAX [Concomitant]
     Indication: ANXIETY
     Dosage: 1 MG TIS
  8. HYDROCODONE [Concomitant]
     Indication: PAIN

REACTIONS (2)
  - Convulsion [Recovered/Resolved]
  - Inappropriate schedule of drug administration [Unknown]
